FAERS Safety Report 18893313 (Version 1)
Quarter: 2021Q1

REPORT INFORMATION
  Report Type: Spontaneous
  Country: US (occurrence: US)
  Receive Date: 20210215
  Receipt Date: 20210215
  Transmission Date: 20210420
  Serious: No
  Sender: FDA-Public Use
  Company Number: US-TAKEDA-2021TUS008292

PATIENT
  Sex: Male
  Weight: 108.84 kg

DRUGS (24)
  1. IBUPROFEN. [Concomitant]
     Active Substance: IBUPROFEN
  2. TEGRETOL [Concomitant]
     Active Substance: CARBAMAZEPINE
  3. ACETAMINOPHEN. [Concomitant]
     Active Substance: ACETAMINOPHEN
  4. CIPROFLOXACIN. [Concomitant]
     Active Substance: CIPROFLOXACIN
  5. ACETAMINOPHEN AND CODEINE [Concomitant]
     Active Substance: ACETAMINOPHEN\CODEINE PHOSPHATE
  6. PRAVASTATIN SODIUM. [Concomitant]
     Active Substance: PRAVASTATIN SODIUM
  7. UROXATRAL [Concomitant]
     Active Substance: ALFUZOSIN HYDROCHLORIDE
  8. HEPARIN [Concomitant]
     Active Substance: HEPARIN SODIUM
  9. AMPYRA [Concomitant]
     Active Substance: DALFAMPRIDINE
  10. MULTIPLE VITAMINS [Concomitant]
     Active Substance: VITAMINS
  11. TYLENOL WITH CODEINE [Concomitant]
     Active Substance: ACETAMINOPHEN\CODEINE PHOSPHATE
  12. EPINEPHRINE. [Concomitant]
     Active Substance: EPINEPHRINE
  13. ROSUVASTATIN CALCIUM. [Concomitant]
     Active Substance: ROSUVASTATIN CALCIUM
  14. TROSPIUM CHLORIDE. [Concomitant]
     Active Substance: TROSPIUM CHLORIDE
  15. CARDURA [Concomitant]
     Active Substance: DOXAZOSIN MESYLATE
  16. FAMOTIDINE. [Concomitant]
     Active Substance: FAMOTIDINE
  17. LEXAPRO [Concomitant]
     Active Substance: ESCITALOPRAM OXALATE
  18. GAMMAGARD LIQUID [Suspect]
     Active Substance: HUMAN IMMUNOGLOBULIN G
     Indication: MULTIPLE SCLEROSIS
     Dosage: 50 MILLIGRAM,2CDQM
     Route: 042
     Dates: start: 20080225
  19. DIPHENHYDRAMINE. [Concomitant]
     Active Substance: DIPHENHYDRAMINE
  20. AMLODIPINE BENAZEPRIL [Concomitant]
     Active Substance: AMLODIPINE BESYLATE\BENAZEPRIL HYDROCHLORIDE
  21. ASPIRIN (E.C.) [Concomitant]
     Active Substance: ASPIRIN
  22. LORAZEPAM. [Concomitant]
     Active Substance: LORAZEPAM
  23. SODIUM CHLORIDE. [Concomitant]
     Active Substance: SODIUM CHLORIDE
  24. ACTONEL [Concomitant]
     Active Substance: RISEDRONATE SODIUM

REACTIONS (3)
  - Headache [Unknown]
  - Dry eye [Unknown]
  - Alopecia [Unknown]
